FAERS Safety Report 25587338 (Version 1)
Quarter: 2025Q3

REPORT INFORMATION
  Report Type: Spontaneous
  Country: US (occurrence: US)
  Receive Date: 20250721
  Receipt Date: 20250721
  Transmission Date: 20251020
  Serious: Yes (Life-Threatening, Hospitalization, Other)
  Sender: PFIZER
  Company Number: US-PFIZER INC-PV202500085450

PATIENT
  Age: 38 Year
  Sex: Male

DRUGS (3)
  1. BLEOMYCIN SULFATE [Suspect]
     Active Substance: BLEOMYCIN SULFATE
     Indication: Testicular germ cell tumour
  2. PACLITAXEL [Concomitant]
     Active Substance: PACLITAXEL
     Indication: Testicular germ cell tumour
  3. ETOPOSIDE [Concomitant]
     Active Substance: ETOPOSIDE
     Indication: Testicular germ cell tumour

REACTIONS (1)
  - Pulmonary toxicity [Recovering/Resolving]
